FAERS Safety Report 21440786 (Version 3)
Quarter: 2022Q4

REPORT INFORMATION
  Report Type: Report from Study
  Country: IT (occurrence: IT)
  Receive Date: 20221011
  Receipt Date: 20221017
  Transmission Date: 20230113
  Serious: Yes (Death, Life-Threatening, Hospitalization, Other)
  Sender: FDA-Public Use
  Company Number: IT-BRISTOL-MYERS SQUIBB COMPANY-2022-114800

PATIENT
  Age: 51 Year
  Sex: Male
  Weight: 110 kg

DRUGS (27)
  1. DEXAMETHASONE [Suspect]
     Active Substance: DEXAMETHASONE
     Indication: Plasma cell myeloma
     Route: 048
     Dates: start: 20210830, end: 20211022
  2. POMALIDOMIDE [Suspect]
     Active Substance: POMALIDOMIDE
     Indication: Plasma cell myeloma
     Route: 048
     Dates: start: 20210830, end: 20211024
  3. CILTACABTAGENE AUTOLEUCEL [Suspect]
     Active Substance: CILTACABTAGENE AUTOLEUCEL
     Indication: Plasma cell myeloma
     Dosage: ARM=B (70 ML, ONCE)
     Route: 042
     Dates: start: 20211115, end: 20211115
  4. BORTEZOMIB [Suspect]
     Active Substance: BORTEZOMIB
     Indication: Plasma cell myeloma
     Route: 058
     Dates: start: 20210830, end: 20211021
  5. CYCLOPHOSPHAMIDE [Suspect]
     Active Substance: CYCLOPHOSPHAMIDE
     Indication: Plasma cell myeloma
     Route: 042
     Dates: start: 20211110, end: 20211112
  6. FLUDARABINE [Suspect]
     Active Substance: FLUDARABINE PHOSPHATE
     Indication: Plasma cell myeloma
     Route: 042
     Dates: start: 20211110, end: 20211112
  7. PREGABALIN [Concomitant]
     Active Substance: PREGABALIN
     Indication: Herpes zoster
     Dosage: 75 MG - 2 DOSAGE FORMS BID (150 MG,1 IN 0.5 D)
     Route: 048
     Dates: start: 20201001, end: 20220401
  8. OMEPRAZOLE [Concomitant]
     Active Substance: OMEPRAZOLE
     Indication: Gastrointestinal disorder therapy
     Route: 048
     Dates: start: 20201101
  9. BISOPROLOL [Concomitant]
     Active Substance: BISOPROLOL
     Indication: Sinus tachycardia
     Route: 048
     Dates: start: 20210219, end: 20220313
  10. ENOXAPARIN SODIUM [Concomitant]
     Active Substance: ENOXAPARIN SODIUM
     Indication: Thrombosis prophylaxis
     Route: 058
     Dates: start: 20210831
  11. LASIX [Concomitant]
     Active Substance: FUROSEMIDE
     Indication: Oedema peripheral
     Route: 048
     Dates: start: 20210915
  12. LASIX [Concomitant]
     Active Substance: FUROSEMIDE
     Indication: Palliative care
     Dosage: UNK
     Route: 065
     Dates: start: 20220303, end: 20220401
  13. KETOPROFEN [Concomitant]
     Active Substance: KETOPROFEN
     Indication: Back pain
     Dosage: AS REQUIRED
     Route: 048
     Dates: start: 20210921, end: 20220401
  14. MORPHINE SULFATE [Concomitant]
     Active Substance: MORPHINE SULFATE
     Indication: Back pain
     Route: 048
     Dates: start: 20210921, end: 20220401
  15. KEPPRA [Concomitant]
     Active Substance: LEVETIRACETAM
     Indication: Seizure prophylaxis
     Route: 042
     Dates: start: 20211122
  16. FOLIC ACID [Concomitant]
     Active Substance: FOLIC ACID
     Indication: Adjuvant therapy
     Dosage: 1 IN 0.33WK
     Route: 048
     Dates: start: 20211201
  17. SULFAMETHOXAZOLE\TRIMETHOPRIM [Concomitant]
     Active Substance: SULFAMETHOXAZOLE\TRIMETHOPRIM
     Indication: Infection prophylaxis
     Dosage: 800/160 (1 IN 0.33 WK)
     Route: 048
     Dates: start: 20211201
  18. METOPROLOL TARTRATE [Concomitant]
     Active Substance: METOPROLOL TARTRATE
     Indication: Sinus tachycardia
     Route: 042
     Dates: start: 20220314, end: 20220316
  19. IVABRADINE HCL [Concomitant]
     Indication: Sinus tachycardia
     Route: 048
     Dates: start: 20220314, end: 20220401
  20. AMIODARONE [Concomitant]
     Active Substance: AMIODARONE
     Indication: Sinus tachycardia
     Route: 065
     Dates: start: 20220316, end: 20220401
  21. NOREPINEPHRINE HYDROCHLORIDE, (+/-)- [Concomitant]
     Active Substance: NOREPINEPHRINE HYDROCHLORIDE, (+/-)-
     Indication: Palliative care
     Route: 065
     Dates: start: 20220303, end: 20220325
  22. NOREPINEPHRINE HYDROCHLORIDE, (+/-)- [Concomitant]
     Active Substance: NOREPINEPHRINE HYDROCHLORIDE, (+/-)-
     Indication: Product used for unknown indication
     Route: 065
     Dates: start: 20220328, end: 20220401
  23. DICLOFENAC [Concomitant]
     Active Substance: DICLOFENAC
     Indication: Palliative care
     Route: 065
     Dates: start: 20220305
  24. ACETAMINOPHEN [Concomitant]
     Active Substance: ACETAMINOPHEN
     Indication: Palliative care
     Route: 048
  25. FLUCONAZOLE [Concomitant]
     Active Substance: FLUCONAZOLE
     Indication: Infection prophylaxis
     Route: 048
     Dates: start: 20211117
  26. ACYCLOVIR [Concomitant]
     Active Substance: ACYCLOVIR
     Indication: Antiviral prophylaxis
     Dosage: 800 MG,1 IN 0.5 D
     Route: 048
     Dates: start: 20211118, end: 20220315
  27. METAMIZOLE SODIUM [Concomitant]
     Active Substance: METAMIZOLE SODIUM
     Indication: Palliative care
     Dosage: AS REQUIRED
     Route: 065

REACTIONS (1)
  - COVID-19 pneumonia [Fatal]

NARRATIVE: CASE EVENT DATE: 20220218
